FAERS Safety Report 9506003 (Version 1)
Quarter: 2013Q1

REPORT INFORMATION
  Report Type: Spontaneous
  Country: US (occurrence: None)
  Receive Date: 20130305
  Receipt Date: 20130305
  Transmission Date: 20140127
  Serious: Yes (Other)
  Sender: FDA-Public Use
  Company Number: 163-21880-11071537

PATIENT
  Age: 69 Year
  Sex: Female
  Weight: 82.1 kg

DRUGS (14)
  1. REVLIMID [Suspect]
     Indication: MYELODYSPLASTIC SYNDROME
     Dosage: 5 MG, QOD,  PO
     Route: 048
     Dates: start: 20100112, end: 20110711
  2. EXJADE (DEFERASIROX) (UNKNOWN) [Concomitant]
  3. VITAMIN D (ERGOCALCIFEROL) (UNKNOWN) [Concomitant]
  4. SYNTHROID (LEVOTHYROXINE SODIUM) (UNKNOWN) [Concomitant]
  5. ASPIRIN (ACETYLSALICYLIC ACID) (UNKNOWN) (ACETYLSALICYLIC ACID) [Concomitant]
  6. CELEBREX (CELECOXIB) (UNKNOWN) [Concomitant]
  7. WELCHOL (COLESEVELAM HYDROCHLORIDE) (UNKNOWN) [Concomitant]
  8. MULTIVITAMINS (MULTIVITAMINS) (UNKNOWN) [Concomitant]
  9. OMEGA 3 FISH OIL (FISH OIL) (UNKNOWN) [Concomitant]
  10. CALCIUM (CALCIUM) (UNKNOWN) [Concomitant]
  11. PRAVACHOL (PRAVASTATIN SODIUM) (UNKNOWN) [Concomitant]
  12. TRIBENZOR (TRIBENZOR) (UNKNOWN) [Concomitant]
  13. NEULASTA (PEGFILGRASTIM) (UNKNOWN) [Concomitant]
  14. AGRYLIN (ANAGRELIDE HYDROCHLORIDE) (UNKNOWN) [Concomitant]

REACTIONS (3)
  - Anaemia [None]
  - White blood cell count decreased [None]
  - Neutropenia [None]
